FAERS Safety Report 26088554 (Version 1)
Quarter: 2025Q4

REPORT INFORMATION
  Report Type: Spontaneous
  Country: US (occurrence: None)
  Receive Date: 20251125
  Receipt Date: 20251125
  Transmission Date: 20260117
  Serious: Yes (Hospitalization)
  Sender: FDA-CTU
  Company Number: None

PATIENT
  Age: 33 Year

DRUGS (6)
  1. ZOSYN [Suspect]
     Active Substance: PIPERACILLIN SODIUM\TAZOBACTAM SODIUM
     Indication: Wound infection
     Dosage: FREQUENCY : DAILY;?
     Route: 042
     Dates: start: 20251002, end: 20251020
  2. ZOSYN [Suspect]
     Active Substance: PIPERACILLIN SODIUM\TAZOBACTAM SODIUM
     Indication: Pseudomonas infection
  3. ACETAMINOPHEN [Concomitant]
     Active Substance: ACETAMINOPHEN
  4. MELOXICAM [Concomitant]
     Active Substance: MELOXICAM
  5. PANTOPRAZOLE [Concomitant]
     Active Substance: PANTOPRAZOLE
  6. BACTRIM DS [Concomitant]
     Active Substance: SULFAMETHOXAZOLE\TRIMETHOPRIM

REACTIONS (11)
  - Pyrexia [None]
  - Myalgia [None]
  - Therapy interrupted [None]
  - Neutrophil count decreased [None]
  - Alanine aminotransferase increased [None]
  - Neutropenia [None]
  - Toxicity to various agents [None]
  - Viral infection [None]
  - Coinfection [None]
  - Rhabdomyolysis [None]
  - Drug hypersensitivity [None]

NARRATIVE: CASE EVENT DATE: 20251019
